FAERS Safety Report 5961150-1 (Version None)
Quarter: 2008Q4

REPORT INFORMATION
  Report Type: 
  Country: None (occurrence: None)
  Receive Date: 20081119
  Receipt Date: 20081107
  Transmission Date: 20090506
  Serious: Yes (Life-Threatening, Other)
  Sender: FDA-Public Use
  Company Number: GXKR2008GB10661

PATIENT
  Age: 71 Year
  Sex: Male

DRUGS (6)
  1. ACETYLSALICYLIC ACID SRT [Suspect]
     Dosage: 75 MG, ORAL
     Route: 048
     Dates: end: 20081025
  2. ARTHROTEC [Suspect]
     Dosage: ORAL
     Route: 048
     Dates: end: 20081025
  3. DOXAZOSIN (DOXAZOSIN) [Concomitant]
  4. ISOSORBIDE MONONITRATE [Concomitant]
  5. LANSOPRAZOLE [Concomitant]
  6. LORATADINE [Concomitant]

REACTIONS (2)
  - HAEMATOCHEZIA [None]
  - SYNCOPE [None]
